FAERS Safety Report 9254315 (Version 1)
Quarter: 2013Q2

REPORT INFORMATION
  Report Type: Spontaneous
  Country: FR (occurrence: FR)
  Receive Date: 20130425
  Receipt Date: 20130425
  Transmission Date: 20140414
  Serious: Yes (Death)
  Sender: FDA-Public Use
  Company Number: PHHY2013FR040713

PATIENT
  Age: 67 Year
  Sex: Male

DRUGS (5)
  1. ONBREZ [Suspect]
     Indication: CHRONIC OBSTRUCTIVE PULMONARY DISEASE
  2. SEREVENT [Suspect]
     Indication: CHRONIC OBSTRUCTIVE PULMONARY DISEASE
     Dosage: UNK
     Dates: start: 2008
  3. SINGULAIR [Suspect]
  4. VENTOLINE [Suspect]
     Dosage: UNK
  5. OXYGEN THERAPY [Suspect]

REACTIONS (2)
  - Death [Fatal]
  - Dyspnoea [Unknown]
